FAERS Safety Report 4813120-4 (Version None)
Quarter: 2005Q4

REPORT INFORMATION
  Report Type: 
  Country: None (occurrence: None)
  Receive Date: 20051028
  Receipt Date: 20050615
  Transmission Date: 20060501
  Serious: No
  Sender: FDA-Public Use
  Company Number: US-GLAXOSMITHKLINE-A0562800A

PATIENT
  Age: 78 Year
  Sex: Female

DRUGS (8)
  1. ADVAIR DISKUS 100/50 [Suspect]
     Indication: EMPHYSEMA
     Dosage: 1PUFF TWICE PER DAY
     Route: 055
  2. ALBUTEROL [Concomitant]
  3. LISINOPRIL [Concomitant]
  4. ASPIRIN [Concomitant]
  5. IRON [Concomitant]
  6. VITAMINS [Concomitant]
  7. CALCIUM GLUCONATE [Concomitant]
  8. MAGNESIUM [Concomitant]

REACTIONS (2)
  - APHONIA [None]
  - DYSPHONIA [None]
